FAERS Safety Report 9234074 (Version 1)
Quarter: 2013Q2

REPORT INFORMATION
  Report Type: Spontaneous
  Country: FR (occurrence: FR)
  Receive Date: 20130416
  Receipt Date: 20130416
  Transmission Date: 20140414
  Serious: Yes (Other)
  Sender: FDA-Public Use
  Company Number: FR-JNJFOC-20130404087

PATIENT
  Age: 38 Year
  Sex: Male

DRUGS (2)
  1. INTELENCE [Suspect]
     Indication: HIV INFECTION CDC CATEGORY A2
     Route: 048
     Dates: start: 20120918, end: 20121007
  2. KIVEXA [Suspect]
     Indication: HIV INFECTION CDC CATEGORY A2
     Route: 048
     Dates: start: 20120918, end: 20121007

REACTIONS (4)
  - Influenza [Unknown]
  - Pyrexia [Recovered/Resolved]
  - Chills [Recovered/Resolved]
  - Myalgia [Recovered/Resolved]
